FAERS Safety Report 6635885-1 (Version None)
Quarter: 2010Q1

REPORT INFORMATION
  Report Type: 
  Country: None (occurrence: None)
  Receive Date: 20100311
  Receipt Date: 20100224
  Transmission Date: 20100710
  Serious: Yes (Disabling, Other)
  Sender: FDA-Public Use
  Company Number: AUR-APL-2010-00726

PATIENT
  Age: 81 Year
  Sex: Male
  Weight: 89.8 kg

DRUGS (3)
  1. SIMVASTATIN [Suspect]
  2. LIPITOR [Suspect]
     Dosage: 20MG, DAILY
  3. PRAVASTATIN SODIUM [Suspect]

REACTIONS (9)
  - CARDIAC MURMUR [None]
  - CELLULITIS [None]
  - DRUG HYPERSENSITIVITY [None]
  - ECONOMIC PROBLEM [None]
  - GALLOP RHYTHM PRESENT [None]
  - IMPAIRED DRIVING ABILITY [None]
  - MUSCLE SPASMS [None]
  - MUSCULAR WEAKNESS [None]
  - PLEURAL CALCIFICATION [None]
